FAERS Safety Report 21110882 (Version 1)
Quarter: 2022Q3

REPORT INFORMATION
  Report Type: Spontaneous
  Country: US (occurrence: None)
  Receive Date: 20220720
  Receipt Date: 20220720
  Transmission Date: 20221026
  Serious: No
  Sender: FDA-Public Use
  Company Number: None

PATIENT
  Age: 84 Year
  Sex: Male
  Weight: 78.75 kg

DRUGS (5)
  1. SUNITINIB [Suspect]
     Active Substance: SUNITINIB
     Indication: Product used for unknown indication
     Dosage: FREQUENCY : DAILY;?
     Route: 048
  2. XANAX [Concomitant]
     Active Substance: ALPRAZOLAM
  3. METOPROLOL SUCCINATE [Concomitant]
     Active Substance: METOPROLOL SUCCINATE
  4. MIDODRINE [Concomitant]
     Active Substance: MIDODRINE
  5. CANNABIDIOL [Concomitant]
     Active Substance: CANNABIDIOL

REACTIONS (2)
  - Fracture [None]
  - Therapy interrupted [None]
